FAERS Safety Report 6701691-2 (Version None)
Quarter: 2010Q2

REPORT INFORMATION
  Report Type: 
  Country: None (occurrence: None)
  Receive Date: 20100429
  Receipt Date: 20100419
  Transmission Date: 20101027
  Serious: Yes (Hospitalization, Other)
  Sender: FDA-Public Use
  Company Number: PHHY2010DE22168

PATIENT
  Sex: Male
  Weight: 117 kg

DRUGS (12)
  1. ALISKIREN ALI+ [Suspect]
     Indication: HYPERTENSION
     Dosage: UNK
     Dates: start: 20090109
  2. DIOVAN [Suspect]
     Indication: HYPERTENSION
     Dosage: 160 MG/DAY
     Dates: start: 20090902
  3. INSULIN [Concomitant]
     Indication: DIABETES MELLITUS
  4. ACE INHIBITOR NOS [Concomitant]
  5. BETA BLOCKING AGENTS [Concomitant]
  6. DIURETICS [Concomitant]
  7. ANTIPLATELET (NSAR) [Concomitant]
  8. STATIN [Concomitant]
  9. VASODILATOR DRUG [Concomitant]
  10. CALCIUM ANTAGONIST [Concomitant]
  11. ANGIOTENSIN RECEPTOR BLOCKER [Concomitant]
  12. THIENOPYRIDINE [Concomitant]

REACTIONS (5)
  - BLOOD CREATININE INCREASED [None]
  - BLOOD PRESSURE SYSTOLIC INCREASED [None]
  - C-REACTIVE PROTEIN INCREASED [None]
  - HYPERTENSION [None]
  - VASCULAR GRAFT [None]
